FAERS Safety Report 11102832 (Version 1)
Quarter: 2015Q2

REPORT INFORMATION
  Report Type: Spontaneous
  Country: US (occurrence: US)
  Receive Date: 20150511
  Receipt Date: 20150511
  Transmission Date: 20150821
  Serious: No
  Sender: FDA-Public Use
  Company Number: US-BAYER-2015-193076

PATIENT
  Age: 82 Year
  Sex: Female
  Weight: 49 kg

DRUGS (7)
  1. SYNTHROID [Concomitant]
     Active Substance: LEVOTHYROXINE SODIUM
  2. LORTAB [Concomitant]
     Active Substance: ACETAMINOPHEN\HYDROCODONE BITARTRATE
  3. OXYTROL FOR WOMEN [Suspect]
     Active Substance: OXYBUTYNIN
     Indication: HYPERTONIC BLADDER
     Dosage: 1 DOSE, PRN
     Route: 061
     Dates: start: 2014
  4. NEXIUM [Concomitant]
     Active Substance: ESOMEPRAZOLE MAGNESIUM
  5. PLETAL [Concomitant]
     Active Substance: CILOSTAZOL
  6. VYTORIN [Concomitant]
     Active Substance: EZETIMIBE\SIMVASTATIN
  7. XANAX [Concomitant]
     Active Substance: ALPRAZOLAM

REACTIONS (1)
  - Skin discolouration [Not Recovered/Not Resolved]

NARRATIVE: CASE EVENT DATE: 2014
